FAERS Safety Report 17471345 (Version 1)
Quarter: 2020Q1

REPORT INFORMATION
  Report Type: Report from Study
  Country: US (occurrence: US)
  Receive Date: 20200227
  Receipt Date: 20200227
  Transmission Date: 20200409
  Serious: Yes (Hospitalization)
  Sender: FDA-Public Use
  Company Number: US-ROCHE-2557474

PATIENT
  Sex: Female

DRUGS (2)
  1. PULMOZYME [Suspect]
     Active Substance: DORNASE ALFA
     Indication: RESPIRATORY FAILURE
  2. PULMOZYME [Suspect]
     Active Substance: DORNASE ALFA
     Indication: SPINAL MUSCULAR ATROPHY
     Dosage: NEBULIZE THE CONTENTS OF 1 VIAL(S) TWICE A DAY
     Route: 065

REACTIONS (3)
  - Nephrolithiasis [Unknown]
  - Off label use [Unknown]
  - Intentional product use issue [Unknown]
